FAERS Safety Report 10777139 (Version 2)
Quarter: 2015Q1

REPORT INFORMATION
  Report Type: Report from Study
  Country: PL (occurrence: PL)
  Receive Date: 20150209
  Receipt Date: 20150216
  Transmission Date: 20150721
  Serious: Yes (Death, Hospitalization)
  Sender: FDA-Public Use
  Company Number: PHHY2015PL015103

PATIENT
  Sex: Female

DRUGS (1)
  1. AFINITOR [Suspect]
     Active Substance: EVEROLIMUS
     Indication: PRODUCT USED FOR UNKNOWN INDICATION
     Route: 065
     Dates: start: 201408

REACTIONS (7)
  - Crepitations [Unknown]
  - Cough [Unknown]
  - Wheezing [Unknown]
  - Death [Fatal]
  - Loss of consciousness [Unknown]
  - Pneumonitis [Unknown]
  - Fall [Unknown]

NARRATIVE: CASE EVENT DATE: 20150128
